FAERS Safety Report 5635255-9 (Version None)
Quarter: 2008Q1

REPORT INFORMATION
  Report Type: 
  Country: None (occurrence: None)
  Receive Date: 20080222
  Receipt Date: 20080220
  Transmission Date: 20080703
  Serious: Yes (Hospitalization)
  Sender: FDA-Public Use
  Company Number: GB-BOEHRINGER INGELHEIM GMBH, GERMANY-2005-UK-01877UK

PATIENT
  Age: 15 Year
  Sex: Female

DRUGS (1)
  1. CATAPRES [Suspect]
     Indication: ABNORMAL BEHAVIOUR
     Dosage: 300 MCG TWICE A DAY

REACTIONS (2)
  - HYPERTENSION [None]
  - VISION BLURRED [None]
